FAERS Safety Report 24652263 (Version 1)
Quarter: 2024Q4

REPORT INFORMATION
  Report Type: Other
  Country: IN (occurrence: IN)
  Receive Date: 20241122
  Receipt Date: 20241122
  Transmission Date: 20250115
  Serious: Yes (Death, Hospitalization)
  Sender: BIONPHARMA INC.
  Company Number: IN-Bion-014335

PATIENT
  Age: 9 Year
  Sex: Female

DRUGS (2)
  1. DEFERASIROX [Suspect]
     Active Substance: DEFERASIROX
     Indication: Serum ferritin
  2. DEFERIPRONE [Concomitant]
     Active Substance: DEFERIPRONE
     Indication: Serum ferritin

REACTIONS (1)
  - Drug ineffective [Fatal]
